FAERS Safety Report 8382097-X (Version None)
Quarter: 2012Q2

REPORT INFORMATION
  Report Type: 
  Country: None (occurrence: None)
  Receive Date: 20120524
  Receipt Date: 20120508
  Transmission Date: 20120825
  Serious: Yes (Other)
  Sender: FDA-Public Use
  Company Number: IT-JNJFOC-20120508133

PATIENT
  Age: 49 Year
  Sex: Female

DRUGS (1)
  1. TOPAMAX [Suspect]
     Indication: PRODUCT USED FOR UNKNOWN INDICATION
     Route: 048
     Dates: start: 20120508, end: 20120508

REACTIONS (4)
  - COMA [None]
  - SELF INJURIOUS BEHAVIOUR [None]
  - HYPERTENSION [None]
  - CONDUCT DISORDER [None]
